FAERS Safety Report 7454085-9 (Version None)
Quarter: 2011Q2

REPORT INFORMATION
  Report Type: 
  Country: None (occurrence: None)
  Receive Date: 20110503
  Receipt Date: 20110429
  Transmission Date: 20111010
  Serious: Yes (Death)
  Sender: FDA-Public Use
  Company Number: US-BRISTOL-MYERS SQUIBB COMPANY-15708357

PATIENT
  Age: 92 Year
  Sex: Male

DRUGS (5)
  1. ONGLYZA [Suspect]
     Dosage: ALSO TAKEN AS CONMED
  2. LIPITOR [Concomitant]
  3. COUMADIN [Suspect]
     Dosage: ALSO TAKEN AS CONMED 5 MG
  4. ADVAIR DISKUS 100/50 [Concomitant]
  5. ARICEPT [Concomitant]

REACTIONS (1)
  - DEATH [None]
